FAERS Safety Report 9361801 (Version 2)
Quarter: 2013Q3

REPORT INFORMATION
  Report Type: Spontaneous
  Country: DE (occurrence: DE)
  Receive Date: 20130621
  Receipt Date: 20130814
  Transmission Date: 20140515
  Serious: Yes (Hospitalization, Other)
  Sender: FDA-Public Use
  Company Number: DE-JNJFOC-20130610652

PATIENT
  Sex: Male
  Weight: 90 kg

DRUGS (9)
  1. XARELTO [Suspect]
     Indication: CEREBROVASCULAR ACCIDENT PROPHYLAXIS
     Dosage: TAKING SINCE 6 MONTHS
     Route: 048
  2. XARELTO [Suspect]
     Indication: ATRIAL FIBRILLATION
     Dosage: TAKING SINCE 6 MONTHS
     Route: 048
  3. RAMIPRIL [Concomitant]
     Route: 065
  4. PANTOPRAZOLE [Concomitant]
     Route: 065
  5. PREDNISOLON [Concomitant]
     Route: 065
  6. FEBUXOSTAT [Concomitant]
     Route: 065
  7. FUROSEMID [Concomitant]
     Indication: CARDIAC FAILURE
     Route: 065
  8. PROTAPHANE [Concomitant]
     Indication: TYPE 2 DIABETES MELLITUS
     Route: 065
  9. ACTRAPID [Concomitant]
     Indication: TYPE 2 DIABETES MELLITUS
     Route: 065

REACTIONS (1)
  - Vasculitis [Recovered/Resolved]
